FAERS Safety Report 6615410-1 (Version None)
Quarter: 2010Q1

REPORT INFORMATION
  Report Type: 
  Country: None (occurrence: None)
  Receive Date: 20100305
  Receipt Date: 20091111
  Transmission Date: 20100710
  Serious: No
  Sender: FDA-Public Use
  Company Number: A0817037A

PATIENT
  Sex: Female

DRUGS (10)
  1. REQUIP [Suspect]
     Indication: RESTLESS LEGS SYNDROME
     Dosage: 4MG AT NIGHT
     Route: 048
  2. ROPINIROLE HYDROCHLORIDE [Suspect]
     Indication: RESTLESS LEGS SYNDROME
     Dosage: 4MG AT NIGHT
     Route: 048
     Dates: start: 20080101
  3. ZANTAC [Concomitant]
  4. DEPO-ESTRADIOL [Concomitant]
  5. TRAMADOL HCL [Concomitant]
  6. ACYCLOVIR [Concomitant]
  7. FLEXERIL [Concomitant]
  8. FIORICET [Concomitant]
  9. CYMBALTA [Concomitant]
  10. CHANTIX [Concomitant]
     Dates: start: 20090205

REACTIONS (1)
  - ADVERSE EVENT [None]
